FAERS Safety Report 25270369 (Version 1)
Quarter: 2025Q2

REPORT INFORMATION
  Report Type: Spontaneous
  Country: TW (occurrence: TW)
  Receive Date: 20250505
  Receipt Date: 20250505
  Transmission Date: 20250717
  Serious: Yes (Other)
  Sender: PFIZER
  Company Number: TW-PFIZER INC-PV202500052981

PATIENT
  Age: 60 Year
  Sex: Male
  Weight: 46.8 kg

DRUGS (15)
  1. PIPERACILLIN SODIUM\TAZOBACTAM SODIUM [Suspect]
     Active Substance: PIPERACILLIN SODIUM\TAZOBACTAM SODIUM
     Indication: Infection
     Dosage: 4 G, 4X/DAY
     Route: 041
     Dates: start: 20250220, end: 20250301
  2. CELEBREX [Concomitant]
     Active Substance: CELECOXIB
     Dosage: 1 DF, 1X/DAY
     Route: 048
  3. DEX-CTM [Concomitant]
     Dosage: 1 DF, 4X/DAY
     Route: 048
  4. COLCHICINE [Concomitant]
     Active Substance: COLCHICINE
     Dosage: 1 DF, 1X/DAY
     Route: 048
  5. TRAMADOL [Concomitant]
     Active Substance: TRAMADOL
     Dosage: 50.0 MG, 3X/DAY
     Route: 041
  6. FEBUXOSTAT [Concomitant]
     Active Substance: FEBUXOSTAT
     Dosage: 1 DF, 1X/DAY
     Route: 048
  7. LEVOPHED [Concomitant]
     Active Substance: NOREPINEPHRINE BITARTRATE
     Dosage: 16.0 MG, 1X/DAY
     Route: 041
  8. PLASBUMIN-25 LOW ALBUMIN [Concomitant]
     Dosage: 25.0 G, 1X/DAY
     Route: 041
  9. DIPHENHYDRAMINE HYDROCHLORIDE [Concomitant]
     Active Substance: DIPHENHYDRAMINE HYDROCHLORIDE
     Route: 042
  10. PANTOPRAZOLE SODIUM [Concomitant]
     Active Substance: PANTOPRAZOLE SODIUM
     Dosage: 40.0 MG, 1X/DAY
     Route: 042
  11. ACETAL [PARACETAMOL] [Concomitant]
     Route: 048
  12. ACETAMOL [PROPACETAMOL HYDROCHLORIDE] [Concomitant]
     Route: 042
  13. DEXILANT [Concomitant]
     Active Substance: DEXLANSOPRAZOLE
     Dosage: 1 DF, 1X/DAY
     Route: 048
  14. SODIUM BICARBONATE [Concomitant]
     Active Substance: SODIUM BICARBONATE
     Dosage: 1 DF, 2X/DAY
     Route: 048
  15. MAGNESIUM SULFATE [Concomitant]
     Active Substance: MAGNESIUM SULFATE
     Route: 041

REACTIONS (5)
  - Thrombocytopenia [Recovered/Resolved]
  - Upper gastrointestinal haemorrhage [Recovered/Resolved]
  - Thrombotic thrombocytopenic purpura [Recovered/Resolved]
  - Acute kidney injury [Recovered/Resolved]
  - Cellulitis [Recovered/Resolved]

NARRATIVE: CASE EVENT DATE: 20250222
